FAERS Safety Report 20079513 (Version 1)
Quarter: 2021Q4

REPORT INFORMATION
  Report Type: Report from Study
  Country: BR (occurrence: BR)
  Receive Date: 20211117
  Receipt Date: 20211117
  Transmission Date: 20220303
  Serious: Yes (Other)
  Sender: FDA-Public Use
  Company Number: BR-NOVARTISPH-NVSC2021BR259919

PATIENT
  Sex: Female

DRUGS (1)
  1. KISQALI [Suspect]
     Active Substance: RIBOCICLIB
     Indication: Product used for unknown indication
     Dosage: 3 DF
     Route: 065

REACTIONS (4)
  - Metastasis [Unknown]
  - Aphthous ulcer [Recovered/Resolved]
  - Eating disorder [Recovered/Resolved]
  - Speech disorder [Recovered/Resolved]
